FAERS Safety Report 7122317-2 (Version None)
Quarter: 2010Q4

REPORT INFORMATION
  Report Type: 
  Country: None (occurrence: None)
  Receive Date: 20101122
  Receipt Date: 20101122
  Transmission Date: 20110411
  Serious: No
  Sender: FDA-Public Use
  Company Number: None

PATIENT
  Age: 55 Year
  Sex: Male
  Weight: 107.2 kg

DRUGS (1)
  1. RANITIDINE [Suspect]
     Indication: ABDOMINAL PAIN UPPER
     Dosage: 150 MG BID PO
     Route: 048
     Dates: start: 20100910, end: 20100915

REACTIONS (1)
  - EYE SWELLING [None]
